FAERS Safety Report 14631012 (Version 1)
Quarter: 2018Q1

REPORT INFORMATION
  Report Type: Spontaneous
  Country: JP (occurrence: JP)
  Receive Date: 20180313
  Receipt Date: 20180313
  Transmission Date: 20180509
  Serious: Yes (Hospitalization)
  Sender: FDA-Public Use
  Company Number: JP-SPECTRUM PHARMACEUTICALS, INC.-17-F-JP-00360

PATIENT
  Sex: Male

DRUGS (1)
  1. FOLOTYN [Suspect]
     Active Substance: PRALATREXATE
     Indication: PRODUCT USED FOR UNKNOWN INDICATION
     Dosage: 20 MG/M2, UNK
     Route: 042
     Dates: start: 20171023

REACTIONS (5)
  - Histiocytosis haematophagic [Recovering/Resolving]
  - Pyrexia [Recovering/Resolving]
  - Platelet count decreased [Recovered/Resolved]
  - Bacterial infection [Recovering/Resolving]
  - Anaemia [Not Recovered/Not Resolved]

NARRATIVE: CASE EVENT DATE: 20171106
